FAERS Safety Report 14269340 (Version 1)
Quarter: 2017Q4

REPORT INFORMATION
  Report Type: Spontaneous
  Country: IT (occurrence: IT)
  Receive Date: 20171211
  Receipt Date: 20171211
  Transmission Date: 20180321
  Serious: Yes (Other)
  Sender: FDA-Public Use
  Company Number: IT-OTSUKA-17238767

PATIENT
  Age: 46 Year
  Sex: Male

DRUGS (5)
  1. NORVASC [Concomitant]
     Active Substance: AMLODIPINE BESYLATE
  2. ABILIFY [Suspect]
     Active Substance: ARIPIPRAZOLE
     Indication: SCHIZOPHRENIA
     Dosage: 15 MG, QD
     Route: 048
     Dates: start: 20111214, end: 20121214
  3. QUETIAPINE. [Concomitant]
     Active Substance: QUETIAPINE
     Dosage: TABLETS PROLONGED RELEASE;
  4. HALOPERIDOL. [Concomitant]
     Active Substance: HALOPERIDOL
  5. MICARDIS [Concomitant]
     Active Substance: TELMISARTAN

REACTIONS (2)
  - Hallucination, auditory [Unknown]
  - Delirium [Unknown]

NARRATIVE: CASE EVENT DATE: 20121214
